FAERS Safety Report 5059163-X (Version None)
Quarter: 2006Q3

REPORT INFORMATION
  Report Type: 
  Country: None (occurrence: None)
  Receive Date: 20060718
  Receipt Date: 20060629
  Transmission Date: 20061208
  Serious: Yes (Hospitalization)
  Sender: FDA-Public Use
  Company Number: 05-000599

PATIENT
  Age: 63 Year
  Sex: Female

DRUGS (3)
  1. PYRIDIUM (PHENAZOPYRIDINE HYDROCHLORIDE) TABLET 100 MG [Suspect]
     Indication: URINARY TRACT INFECTION
     Dosage: 100 MG TID ORAL
     Route: 048
  2. RANITIDINE [Concomitant]
  3. ALPRAZOLAM [Concomitant]

REACTIONS (14)
  - ANISOCYTOSIS [None]
  - BLOOD PRESSURE DECREASED [None]
  - CONSTIPATION [None]
  - CYANOSIS [None]
  - DIZZINESS [None]
  - DYSPNOEA EXERTIONAL [None]
  - EOSINOPHILIA [None]
  - EPIGASTRIC DISCOMFORT [None]
  - FATIGUE [None]
  - HAEMOGLOBIN DECREASED [None]
  - HEART RATE INCREASED [None]
  - OXYGEN SATURATION DECREASED [None]
  - POLYCHROMASIA [None]
  - SULPHAEMOGLOBINAEMIA [None]
